FAERS Safety Report 24943911 (Version 3)
Quarter: 2025Q3

REPORT INFORMATION
  Report Type: Spontaneous
  Country: US (occurrence: US)
  Receive Date: 20250207
  Receipt Date: 20250731
  Transmission Date: 20251020
  Serious: Yes (Hospitalization, Other)
  Sender: PFIZER
  Company Number: US-PFIZER INC-202101034936

PATIENT
  Age: 75 Year
  Sex: Female

DRUGS (6)
  1. IBRANCE [Suspect]
     Active Substance: PALBOCICLIB
     Indication: Hormone receptor positive HER2 negative breast cancer
     Route: 048
  2. IBRANCE [Suspect]
     Active Substance: PALBOCICLIB
  3. IBRANCE [Suspect]
     Active Substance: PALBOCICLIB
     Route: 048
  4. IBRANCE [Suspect]
     Active Substance: PALBOCICLIB
     Route: 048
  5. IBRANCE [Suspect]
     Active Substance: PALBOCICLIB
     Route: 048
  6. ATORVASTATIN [Concomitant]
     Active Substance: ATORVASTATIN
     Indication: Cerebrovascular accident prophylaxis
     Dosage: 80 MG, DAILY (EVERY EVENING)
     Route: 048

REACTIONS (5)
  - Traumatic intracranial haemorrhage [Unknown]
  - Fall [Unknown]
  - Full blood count abnormal [Unknown]
  - Off label use [Unknown]
  - Product use issue [Unknown]
